FAERS Safety Report 8764677 (Version 1)
Quarter: 2012Q4

REPORT INFORMATION
  Report Type: 
  Country: US (occurrence: US)
  Receive Date: 20120830
  Receipt Date: 20120830
  Transmission Date: 20130627
  Serious: Yes (Hospitalization, Other)
  Sender: FDA-Public Use
  Company Number: US-ELI_LILLY_AND_COMPANY-US201206005468

PATIENT
  Sex: Male

DRUGS (20)
  1. FORTEO [Suspect]
     Indication: OSTEOPOROSIS
     Dosage: 20 ug, qd
     Dates: start: 20120610
  2. FORTEO [Suspect]
     Dosage: 20 ug, qd
  3. CALCIUM [Concomitant]
  4. SIMVASTATIN [Concomitant]
  5. ASPIRIN [Concomitant]
  6. LEVODOPA [Concomitant]
  7. TERAZOSIN [Concomitant]
  8. GABAPENTIN [Concomitant]
  9. HYDROCHLOROTHIAZIDE [Concomitant]
  10. METOPROLOL [Concomitant]
  11. OMEPRAZOLE [Concomitant]
  12. VITAMIN D3 [Concomitant]
  13. VITAMIN B6 [Concomitant]
  14. FOLIC ACID [Concomitant]
  15. VITAMIN B12 [Concomitant]
  16. SINGULAIR [Concomitant]
  17. AMLODIPINE [Concomitant]
  18. CETIRIZINE [Concomitant]
  19. OXYCODONE AND ACETAMINOPHEN [Concomitant]
  20. NORTRIPTYLINE [Concomitant]

REACTIONS (7)
  - Rib fracture [Unknown]
  - Pelvic fracture [Unknown]
  - Fall [Unknown]
  - Illusion [Unknown]
  - Hallucination [Not Recovered/Not Resolved]
  - Delusion [Recovered/Resolved]
  - Pain [Unknown]
